FAERS Safety Report 10314008 (Version 1)
Quarter: 2014Q3

REPORT INFORMATION
  Report Type: Spontaneous
  Country: US (occurrence: US)
  Receive Date: 20140718
  Receipt Date: 20140718
  Transmission Date: 20150326
  Serious: No
  Sender: FDA-Public Use
  Company Number: US-MYLANLABS-2014S1010172

PATIENT
  Age: 31 Year
  Sex: Female

DRUGS (1)
  1. ONDANSETRON ORALLY DISINTEGRATING TABLETS, USP [Suspect]
     Active Substance: ONDANSETRON
     Route: 048
     Dates: start: 20140429

REACTIONS (1)
  - Migraine [Not Recovered/Not Resolved]

NARRATIVE: CASE EVENT DATE: 20140429
